FAERS Safety Report 4974661-2 (Version None)
Quarter: 2006Q2

REPORT INFORMATION
  Report Type: 
  Country: None (occurrence: None)
  Receive Date: 20060410
  Receipt Date: 20060328
  Transmission Date: 20061013
  Serious: Yes (Death)
  Sender: FDA-Public Use
  Company Number: 221178

PATIENT
  Age: 47 Year
  Sex: Male

DRUGS (12)
  1. RITUXAN [Suspect]
     Indication: RHEUMATOID ARTHRITIS
     Dosage: 500 MG, INTRAVENOUS
     Route: 042
     Dates: start: 20051228, end: 20060104
  2. METHOTREXATE [Concomitant]
  3. BETAMETHASONE [Concomitant]
  4. ENBREL [Concomitant]
  5. DICLOFENAC SODIUM [Concomitant]
  6. OMEPRAZOLE [Concomitant]
  7. ECABET SODIUM [Concomitant]
  8. ETIZOLAM [Concomitant]
  9. VOGLIBOSE [Concomitant]
  10. ALENDRONATE SODIUM [Concomitant]
  11. ELCATONIN [Concomitant]
  12. URSODESOXYCHOLIC ACID [Concomitant]

REACTIONS (9)
  - AORTIC ANEURYSM [None]
  - BLOOD PRESSURE ABNORMAL [None]
  - CARDIAC TAMPONADE [None]
  - CARDIO-RESPIRATORY ARREST [None]
  - CARDIOVASCULAR DISORDER [None]
  - HEART RATE INCREASED [None]
  - OXYGEN SATURATION DECREASED [None]
  - PERICARDIAL EFFUSION [None]
  - PERICARDIAL HAEMORRHAGE [None]
